FAERS Safety Report 4952983-9 (Version None)
Quarter: 2006Q1

REPORT INFORMATION
  Report Type: 
  Country: None (occurrence: None)
  Receive Date: 20060324
  Receipt Date: 20060303
  Transmission Date: 20060701
  Serious: Yes (Hospitalization)
  Sender: FDA-Public Use
  Company Number: JP-NOVOPROD-251333

PATIENT
  Age: 56 Year
  Sex: Male
  Weight: 45 kg

DRUGS (9)
  1. NOVORAPID CHU [Suspect]
     Indication: INSULIN-REQUIRING TYPE II DIABETES MELLITUS
     Dosage: 16 IU, QD
     Dates: start: 20031206
  2. NOVORAPID CHU [Suspect]
     Dosage: 9 IU, QD
     Dates: start: 20040301, end: 20040531
  3. NOVORAPID CHU [Suspect]
     Dosage: 6-16 IU, QD
     Route: 058
  4. LANTUS [Concomitant]
     Dosage: 3 IU, QD AT DINNER
     Route: 058
     Dates: start: 20040107
  5. GASTER [Concomitant]
     Dosage: 20 MG, QD
     Route: 048
     Dates: start: 20031206
  6. KALIMATE [Concomitant]
     Dosage: 10 MG, QD
     Route: 048
     Dates: start: 20031203
  7. ASPIRIN [Concomitant]
     Dosage: 100 MG, QD
     Route: 048
     Dates: start: 20031206
  8. MARZULENE [Concomitant]
     Dosage: 1.5 G, QD
     Route: 048
     Dates: start: 20031206
  9. LAXOBERON [Concomitant]
     Route: 048
     Dates: start: 20031206

REACTIONS (3)
  - ENTERITIS [None]
  - HYPOGLYCAEMIA [None]
  - ILEUS [None]
